FAERS Safety Report 21244554 (Version 3)
Quarter: 2022Q3

REPORT INFORMATION
  Report Type: Spontaneous
  Country: MX (occurrence: MX)
  Receive Date: 20220823
  Receipt Date: 20220826
  Transmission Date: 20221027
  Serious: Yes (Death)
  Sender: FDA-Public Use
  Company Number: MX-JNJFOC-20220847298

PATIENT
  Sex: Male

DRUGS (1)
  1. LOMOTIL [Suspect]
     Active Substance: ATROPINE SULFATE\DIPHENOXYLATE HYDROCHLORIDE
     Indication: Diarrhoea
     Route: 065

REACTIONS (5)
  - Neoplasm malignant [Fatal]
  - Acquired immunodeficiency syndrome [Fatal]
  - Gonorrhoea [Fatal]
  - Diarrhoea [Unknown]
  - Drug ineffective [Unknown]
